FAERS Safety Report 10253307 (Version 1)
Quarter: 2014Q2

REPORT INFORMATION
  Report Type: Spontaneous
  Country: US (occurrence: US)
  Receive Date: 20140623
  Receipt Date: 20140623
  Transmission Date: 20141212
  Serious: No
  Sender: FDA-Public Use
  Company Number: US-SHIONOGI, INC-2014000289

PATIENT
  Age: 55 Year
  Sex: Female

DRUGS (1)
  1. OSPHENA [Suspect]
     Indication: DYSPAREUNIA
     Dosage: UNK
     Route: 065

REACTIONS (2)
  - Anxiety [Recovered/Resolved]
  - Abnormal dreams [Recovered/Resolved]
